FAERS Safety Report 23099914 (Version 1)
Quarter: 2023Q4

REPORT INFORMATION
  Report Type: Spontaneous
  Country: US (occurrence: None)
  Receive Date: 20231023
  Receipt Date: 20231023
  Transmission Date: 20240109
  Serious: Yes (Other)
  Sender: FDA-Public Use
  Company Number: None

PATIENT
  Age: 68 Year
  Sex: Male
  Weight: 143.1 kg

DRUGS (7)
  1. RYBELSUS [Suspect]
     Active Substance: SEMAGLUTIDE
     Indication: Weight decreased
     Dosage: OTHER QUANTITY : 1 TABLET(S);?
     Route: 048
     Dates: start: 20230627, end: 20230715
  2. IMURAN [Concomitant]
     Active Substance: AZATHIOPRINE
  3. PLAQUENIL [Concomitant]
     Active Substance: HYDROXYCHLOROQUINE SULFATE
  4. ibersartan [Concomitant]
  5. hydroclorthizide [Concomitant]
  6. MAGNESIUM [Concomitant]
     Active Substance: MAGNESIUM
  7. VITAMIN D [Concomitant]
     Active Substance: VITAMIN D NOS

REACTIONS (3)
  - Abdominal pain [None]
  - Constipation [None]
  - Therapy cessation [None]

NARRATIVE: CASE EVENT DATE: 20230715
